FAERS Safety Report 4566835-X (Version None)
Quarter: 2005Q1

REPORT INFORMATION
  Report Type: 
  Country: None (occurrence: None)
  Receive Date: 20050201
  Receipt Date: 20020418
  Transmission Date: 20050727
  Serious: Yes (Other)
  Sender: FDA-Public Use
  Company Number: US-BRISTOL-MYERS SQUIBB COMPANY-11834256

PATIENT
  Age: 33 Year
  Sex: Female

DRUGS (9)
  1. STADOL [Suspect]
     Indication: MIGRAINE
     Route: 045
     Dates: start: 19950205, end: 20010101
  2. CARISOPRODOL [Concomitant]
  3. AMITRIPTYLINE [Concomitant]
  4. PROPOXYPHENE NAPSYLATE + ASA [Concomitant]
  5. HYDROCODONE + ACETAMINOPHEN [Concomitant]
  6. DEXAMETHASONE [Concomitant]
  7. PROMETHAZINE [Concomitant]
  8. ULTRAM [Concomitant]
  9. PERCOCET [Concomitant]

REACTIONS (1)
  - DEPENDENCE [None]
